FAERS Safety Report 11343977 (Version 2)
Quarter: 2015Q3

REPORT INFORMATION
  Report Type: Report from Study
  Country: BR (occurrence: BR)
  Receive Date: 20150806
  Receipt Date: 20150907
  Transmission Date: 20151125
  Serious: Yes (Other)
  Sender: FDA-Public Use
  Company Number: BR-ROCHE-1455350

PATIENT
  Age: 63 Year
  Sex: Male
  Weight: 96 kg

DRUGS (10)
  1. SPIRIVA [Concomitant]
     Active Substance: TIOTROPIUM BROMIDE MONOHYDRATE
     Route: 065
     Dates: start: 2014
  2. XOLAIR [Suspect]
     Active Substance: OMALIZUMAB
     Indication: ASTHMA
     Route: 058
     Dates: start: 201201, end: 201303
  3. XOLAIR [Suspect]
     Active Substance: OMALIZUMAB
     Dosage: 1 ON EACH ARM FOR EVERY 30, 26 AND 28 DAYS
     Route: 058
     Dates: start: 201504
  4. XOLAIR [Suspect]
     Active Substance: OMALIZUMAB
     Dosage: 1 ON EACH ARM FOR EVERY 30, 26 AND 28 DAYS
     Route: 058
     Dates: start: 201405, end: 201405
  5. ALENIA (BRAZIL) [Concomitant]
     Active Substance: BUDESONIDE\FORMOTEROL FUMARATE
  6. ASPIRIN. [Concomitant]
     Active Substance: ASPIRIN
  7. SYMBICORT [Concomitant]
     Active Substance: BUDESONIDE\FORMOTEROL FUMARATE DIHYDRATE
  8. XOLAIR [Suspect]
     Active Substance: OMALIZUMAB
     Route: 058
     Dates: start: 201403
  9. XOLAIR [Suspect]
     Active Substance: OMALIZUMAB
     Route: 058
     Dates: end: 201311
  10. XOLAIR [Suspect]
     Active Substance: OMALIZUMAB
     Route: 058

REACTIONS (12)
  - Pneumonia [Recovered/Resolved]
  - Abasia [Recovered/Resolved]
  - Immunodeficiency [Recovered/Resolved]
  - Rash [Recovered/Resolved]
  - Drug ineffective [Unknown]
  - Asthma [Recovered/Resolved]
  - Headache [Recovered/Resolved]
  - Sinusitis [Recovered/Resolved]
  - Swelling [Recovered/Resolved]
  - Abdominal rigidity [Recovered/Resolved]
  - Influenza [Recovered/Resolved]
  - Weight increased [Recovered/Resolved]

NARRATIVE: CASE EVENT DATE: 201201
